FAERS Safety Report 20009155 (Version 6)
Quarter: 2022Q2

REPORT INFORMATION
  Report Type: Report from Study
  Country: US (occurrence: US)
  Receive Date: 20211028
  Receipt Date: 20220607
  Transmission Date: 20220720
  Serious: Yes (Other)
  Sender: FDA-Public Use
  Company Number: US-ABBVIE-21K-163-4135909-00

PATIENT
  Age: 62 Year
  Sex: Female

DRUGS (3)
  1. RINVOQ [Suspect]
     Active Substance: UPADACITINIB
     Indication: Rheumatoid arthritis
     Route: 048
  2. MODERNA COVID-19 VACCINE [Suspect]
     Active Substance: ELASOMERAN
     Indication: COVID-19 immunisation
     Dosage: 1ST DOSE
     Route: 030
  3. MODERNA COVID-19 VACCINE [Suspect]
     Active Substance: ELASOMERAN
     Dosage: 2ND DOSE
     Route: 030

REACTIONS (11)
  - Spinal fusion surgery [Recovering/Resolving]
  - Cerebrovascular accident [Unknown]
  - Spinal osteoarthritis [Unknown]
  - Gait disturbance [Unknown]
  - Mobility decreased [Unknown]
  - Illness [Unknown]
  - Nerve injury [Recovering/Resolving]
  - Post procedural complication [Recovering/Resolving]
  - Back pain [Not Recovered/Not Resolved]
  - Inflammation [Unknown]
  - Cough [Unknown]

NARRATIVE: CASE EVENT DATE: 20210806
